FAERS Safety Report 4451496-0 (Version None)
Quarter: 2004Q3

REPORT INFORMATION
  Report Type: 
  Country: None (occurrence: None)
  Receive Date: 20040915
  Receipt Date: 20040902
  Transmission Date: 20050211
  Serious: Yes (Hospitalization)
  Sender: FDA-Public Use
  Company Number: HQWYE548322JUN04

PATIENT
  Age: 38 Year
  Sex: Male

DRUGS (7)
  1. NEORAL [Suspect]
     Indication: PROPHYLAXIS AGAINST TRANSPLANT REJECTION
  2. CARVEDILOL [Concomitant]
  3. LOSARTAN (LOSARTAN) [Concomitant]
  4. TORSEMIDE [Concomitant]
  5. FUROSEMIDE [Concomitant]
  6. DOXAZOSIN (DOXAZOSIN) [Concomitant]
  7. ATENOLOL [Concomitant]

REACTIONS (3)
  - CONCOMITANT DISEASE PROGRESSION [None]
  - HYPERTENSION [None]
  - RENAL FAILURE CHRONIC [None]
